FAERS Safety Report 6620237-0 (Version None)
Quarter: 2010Q1

REPORT INFORMATION
  Report Type: 
  Country: None (occurrence: None)
  Receive Date: 20100304
  Receipt Date: 20100217
  Transmission Date: 20100710
  Serious: Yes (Hospitalization, Other)
  Sender: FDA-Public Use
  Company Number: AUR-APL-2010-00528

PATIENT
  Age: 61 Year
  Sex: Male

DRUGS (6)
  1. CIPROFLOXACIN [Suspect]
  2. METHADONE HCL [Suspect]
     Indication: BACK PAIN
  3. VENLAFAXINE HCL [Suspect]
     Indication: MAJOR DEPRESSION
     Dosage: 100MG BID ORAL
     Route: 048
  4. HYDROMORPHONE HCL [Concomitant]
  5. OXYCODONE HCL [Concomitant]
  6. METOCLOPRAMIDE [Concomitant]

REACTIONS (14)
  - ANXIETY [None]
  - ATAXIA [None]
  - DIARRHOEA [None]
  - DRUG INTERACTION [None]
  - DRUG TOXICITY [None]
  - FALL [None]
  - HYPERHIDROSIS [None]
  - HYPERREFLEXIA [None]
  - MICROANGIOPATHY [None]
  - MYOCLONUS [None]
  - SEROTONIN SYNDROME [None]
  - TACHYCARDIA [None]
  - TACHYPNOEA [None]
  - TREMOR [None]
